FAERS Safety Report 4327791-2 (Version None)
Quarter: 2004Q1

REPORT INFORMATION
  Report Type: 
  Country: None (occurrence: None)
  Receive Date: 20040325
  Receipt Date: 20040315
  Transmission Date: 20041129
  Serious: Yes (Death)
  Sender: FDA-Public Use
  Company Number: JP-JNJFOC-20031005980

PATIENT
  Age: 34 Year
  Sex: Male
  Weight: 60 kg

DRUGS (11)
  1. REMICADE [Suspect]
     Indication: CROHN'S DISEASE
     Dosage: 5 MG/KG, 1 IN 1 AS NECESSARY, INTRAVENOUS DRIP
     Route: 041
     Dates: start: 20021106, end: 20021106
  2. REMICADE [Suspect]
     Indication: CROHN'S DISEASE
     Dosage: 5 MG/KG, 1 IN 1 AS NECESSARY, INTRAVENOUS DRIP
     Route: 041
     Dates: start: 20021204, end: 20021204
  3. PREDNISOLONE [Concomitant]
  4. ELENTAL (ELENTAL) [Concomitant]
  5. SELBEX (TEPRENONE) [Concomitant]
  6. LAC-B (LACTOBACILLUS BIFIDUS, LYOPHILIZED) [Concomitant]
  7. FERROMIA (FERROUS CITRATE) [Concomitant]
  8. DAIKENSHUTO (ALL OTHER THERAPEUTIC PROCUCTS) [Concomitant]
  9. GASMOTIN (MOSAPRIDE CITRATE) [Concomitant]
  10. LOXONIN (LOXOPROFEN SODIUM) [Concomitant]
  11. ENTERAL NUTRITION (SOLUTIONS FOR PARENTERAL NUTRITION) [Concomitant]

REACTIONS (1)
  - INTESTINAL OBSTRUCTION [None]
